FAERS Safety Report 6734099-4 (Version None)
Quarter: 2010Q2

REPORT INFORMATION
  Report Type: 
  Country: None (occurrence: None)
  Receive Date: 20100520
  Receipt Date: 20100511
  Transmission Date: 20101027
  Serious: Yes (Hospitalization, Disabling, Other)
  Sender: FDA-Public Use
  Company Number: US-MERCK-0712USA08205

PATIENT
  Age: 68 Year
  Sex: Female

DRUGS (1)
  1. FOSAMAX [Suspect]
     Indication: OSTEOPOROSIS
     Route: 048
     Dates: start: 20021201, end: 20040401

REACTIONS (46)
  - ABSCESS [None]
  - ARTHRALGIA [None]
  - BACK PAIN [None]
  - BREAST DISORDER [None]
  - BREAST DISORDER FEMALE [None]
  - BURNING SENSATION [None]
  - CAROTID ARTERY OCCLUSION [None]
  - CATARACT [None]
  - CEREBROVASCULAR ACCIDENT [None]
  - CONSTIPATION [None]
  - DENTAL CARIES [None]
  - DERMATITIS DIAPER [None]
  - DIVERTICULUM [None]
  - EDENTULOUS [None]
  - FISTULA DISCHARGE [None]
  - GINGIVAL BLEEDING [None]
  - GINGIVAL DISORDER [None]
  - HERPES VIRUS INFECTION [None]
  - HYPOAESTHESIA [None]
  - IMPAIRED HEALING [None]
  - INSOMNIA [None]
  - JOINT RANGE OF MOTION DECREASED [None]
  - MENTAL STATUS CHANGES [None]
  - MULTIPLE INJURIES [None]
  - NECK PAIN [None]
  - NEOPLASM MALIGNANT [None]
  - ORAL DISORDER [None]
  - ORAL INFECTION [None]
  - ORAL TORUS [None]
  - OSTEOMYELITIS [None]
  - OSTEONECROSIS [None]
  - OSTEONECROSIS OF JAW [None]
  - OSTEORADIONECROSIS [None]
  - PAIN [None]
  - PARAESTHESIA [None]
  - PERIODONTAL DISEASE [None]
  - POSTERIOR CAPSULE OPACIFICATION [None]
  - SACROILIITIS [None]
  - SEPSIS [None]
  - SWELLING [None]
  - TEMPOROMANDIBULAR JOINT SYNDROME [None]
  - TOOTH LOSS [None]
  - TRANSIENT ISCHAEMIC ATTACK [None]
  - TRISMUS [None]
  - UNEVALUABLE EVENT [None]
  - URINARY INCONTINENCE [None]
